FAERS Safety Report 15207577 (Version 1)
Quarter: 2018Q3

REPORT INFORMATION
  Report Type: Spontaneous
  Country: US (occurrence: US)
  Receive Date: 20180727
  Receipt Date: 20180727
  Transmission Date: 20181010
  Serious: No
  Sender: FDA-Public Use
  Company Number: US-SA-2018SA203229

PATIENT
  Age: 31 Year
  Sex: Female

DRUGS (1)
  1. ALLEGRA [Suspect]
     Active Substance: FEXOFENADINE HYDROCHLORIDE
     Indication: HYPERSENSITIVITY
     Dosage: 30 MG, 1X
     Route: 048
     Dates: start: 20180720, end: 20180720

REACTIONS (4)
  - Pruritus [Unknown]
  - Drug ineffective [Unknown]
  - Nasal congestion [Unknown]
  - Lacrimation increased [Unknown]
